FAERS Safety Report 12448616 (Version 1)
Quarter: 2016Q2

REPORT INFORMATION
  Report Type: Spontaneous
  Country: HR (occurrence: HR)
  Receive Date: 20160608
  Receipt Date: 20160608
  Transmission Date: 20160815
  Serious: Yes (Life-Threatening, Hospitalization)
  Sender: FDA-Public Use
  Company Number: HR-TEVA-665911ACC

PATIENT
  Age: 59 Year
  Sex: Female

DRUGS (5)
  1. KLAVOCIN BID [Suspect]
     Active Substance: AMOXICILLIN\CLAVULANIC ACID
     Indication: BRONCHITIS
     Dosage: 2 DOSAGE FORMS DAILY; 1 G; 2X1
     Route: 048
  2. MARTEFARIN [Interacting]
     Active Substance: WARFARIN
     Indication: HEART DISEASE CONGENITAL
     Dosage: 3 MG ; PLANNED ALTERNATELY 1.5 AND 2 TABLETS
     Route: 048
  3. LIPEX [Concomitant]
     Active Substance: SIMVASTATIN
     Indication: HEART DISEASE CONGENITAL
     Dosage: 20 MILLIGRAM DAILY; 20 MG; 1X1
     Route: 048
  4. ISOPTIN SR [Concomitant]
     Active Substance: VERAPAMIL HYDROCHLORIDE
     Indication: HEART DISEASE CONGENITAL
     Dosage: 4 MILLIGRAM DAILY; 4 MG; 1X1
     Route: 048
  5. CARVELOL [Concomitant]
     Indication: HEART DISEASE CONGENITAL
     Dosage: 12.5 MILLIGRAM DAILY; 6,25 MG; 2X1
     Route: 048

REACTIONS (4)
  - Epistaxis [Recovering/Resolving]
  - Drug interaction [Recovering/Resolving]
  - Ear haemorrhage [Recovering/Resolving]
  - Large intestinal haemorrhage [Recovering/Resolving]

NARRATIVE: CASE EVENT DATE: 20160510
